FAERS Safety Report 7389157-0 (Version None)
Quarter: 2011Q2

REPORT INFORMATION
  Report Type: 
  Country: None (occurrence: None)
  Receive Date: 20110401
  Receipt Date: 20110323
  Transmission Date: 20111010
  Serious: Yes (Other)
  Sender: FDA-Public Use
  Company Number: BR-ASTRAZENECA-2011SE16691

PATIENT
  Age: 52 Year
  Sex: Female

DRUGS (5)
  1. ATACAND [Suspect]
     Route: 048
     Dates: start: 20110101, end: 20110101
  2. ATORVASTATIN CALCIUM [Concomitant]
     Indication: HYPERTRIGLYCERIDAEMIA
     Route: 048
     Dates: start: 20070101
  3. ATACAND [Suspect]
     Route: 048
     Dates: start: 20110101
  4. ATORVASTATIN CALCIUM [Concomitant]
     Indication: HYPERCHOLESTEROLAEMIA
     Route: 048
     Dates: start: 20070101
  5. ATACAND [Suspect]
     Indication: HYPERTENSION
     Route: 048
     Dates: start: 20080101, end: 20101101

REACTIONS (3)
  - DIABETES MELLITUS [None]
  - DENGUE FEVER [None]
  - DRUG DOSE OMISSION [None]
